FAERS Safety Report 24779882 (Version 1)
Quarter: 2024Q4

REPORT INFORMATION
  Report Type: Spontaneous
  Country: PL (occurrence: PL)
  Receive Date: 20241226
  Receipt Date: 20241226
  Transmission Date: 20250115
  Serious: Yes (Hospitalization, Other)
  Sender: NOVITIUM PHARMA
  Company Number: PL-NOVITIUMPHARMA-2024PLNVP02991

PATIENT
  Age: 3 Year
  Sex: Male

DRUGS (8)
  1. DEXAMETHASONE [Suspect]
     Active Substance: DEXAMETHASONE
     Indication: CTLA4 deficiency
  2. Immune-globulin [Concomitant]
     Indication: CTLA4 deficiency
     Route: 042
  3. Immune-globulin [Concomitant]
     Route: 042
  4. METHYLPREDNISOLONE [Concomitant]
     Active Substance: METHYLPREDNISOLONE
     Indication: CTLA4 deficiency
  5. THYMOCYTE IMMUNE GLOBULIN NOS [Concomitant]
     Active Substance: THYMOCYTE IMMUNE GLOBULIN NOS
     Indication: CTLA4 deficiency
  6. ETOPOSIDE [Concomitant]
     Active Substance: ETOPOSIDE
     Indication: CTLA4 deficiency
  7. CYCLOSPORINE [Concomitant]
     Active Substance: CYCLOSPORINE
     Indication: CTLA4 deficiency
  8. GANCICLOVIR [Concomitant]
     Active Substance: GANCICLOVIR
     Indication: Product used for unknown indication

REACTIONS (2)
  - Renal failure [Unknown]
  - N-terminal prohormone brain natriuretic peptide increased [Unknown]
